FAERS Safety Report 15878928 (Version 2)
Quarter: 2020Q1

REPORT INFORMATION
  Report Type: Spontaneous
  Country: CA (occurrence: CA)
  Receive Date: 20190128
  Receipt Date: 20200131
  Transmission Date: 20200409
  Serious: Yes (Other)
  Sender: FDA-Public Use
  Company Number: CA-UCBSA-2019002242

PATIENT
  Age: 48 Year
  Sex: Female

DRUGS (23)
  1. ENBREL [Suspect]
     Active Substance: ETANERCEPT
     Indication: RHEUMATOID ARTHRITIS
     Dosage: 50 MG, UNK
  2. LEFLUNOMIDE. [Suspect]
     Active Substance: LEFLUNOMIDE
     Dosage: 10 MG, UNK
     Route: 048
  3. LEFLUNOMIDE. [Suspect]
     Active Substance: LEFLUNOMIDE
     Dosage: 20 MILLIGRAM
  4. GOLD [Suspect]
     Active Substance: GOLD
     Indication: PRODUCT USED FOR UNKNOWN INDICATION
  5. PREDNISONE. [Concomitant]
     Active Substance: PREDNISONE
     Indication: PRODUCT USED FOR UNKNOWN INDICATION
  6. HUMIRA [Suspect]
     Active Substance: ADALIMUMAB
     Indication: PRODUCT USED FOR UNKNOWN INDICATION
     Dosage: SOLUTION
     Route: 058
  7. HYDROXYCHLOROQUINE SULFATE. [Suspect]
     Active Substance: HYDROXYCHLOROQUINE SULFATE
     Dosage: 5 MG, UNK
  8. METHOTREXATE. [Suspect]
     Active Substance: METHOTREXATE
     Indication: PRODUCT USED FOR UNKNOWN INDICATION
     Dosage: 5 MG, UNK
  9. TOFACITINIB [Suspect]
     Active Substance: TOFACITINIB
     Indication: PRODUCT USED FOR UNKNOWN INDICATION
     Dosage: 5 MG, 2X/DAY (BID)
     Route: 048
  10. APO-LEFLUNOMIDE [Suspect]
     Active Substance: LEFLUNOMIDE
     Dosage: 20 MILLIGRAM
  11. SULFASALAZINE. [Suspect]
     Active Substance: SULFASALAZINE
     Indication: RHEUMATOID ARTHRITIS
  12. XELJANZ [Suspect]
     Active Substance: TOFACITINIB CITRATE
     Indication: PRODUCT USED FOR UNKNOWN INDICATION
     Dosage: 5 MILLIGRAM, 2X/DAY (BID)
     Route: 048
  13. REMICADE [Suspect]
     Active Substance: INFLIXIMAB
     Indication: PRODUCT USED FOR UNKNOWN INDICATION
     Dosage: POWDER FOR SOLUTION
     Route: 042
  14. SIMPONI [Suspect]
     Active Substance: GOLIMUMAB
     Indication: PRODUCT USED FOR UNKNOWN INDICATION
     Route: 058
  15. CIMZIA [Suspect]
     Active Substance: CERTOLIZUMAB PEGOL
     Indication: PRODUCT USED FOR UNKNOWN INDICATION
     Dosage: 200 MG, EV 2 WEEKS(QOW)
     Route: 058
  16. HYDROXYCHLOROQUINE SULFATE. [Suspect]
     Active Substance: HYDROXYCHLOROQUINE SULFATE
     Dosage: 400 MILLIGRAM
  17. METHOTREXATE. [Suspect]
     Active Substance: METHOTREXATE
     Dosage: UNK
  18. ORENCIA [Suspect]
     Active Substance: ABATACEPT
     Indication: PRODUCT USED FOR UNKNOWN INDICATION
     Dosage: 750 MG, UNK
  19. APO-LEFLUNOMIDE [Suspect]
     Active Substance: LEFLUNOMIDE
     Dosage: 5 MILLIGRAM
  20. ARAVA [Concomitant]
     Active Substance: LEFLUNOMIDE
     Indication: PRODUCT USED FOR UNKNOWN INDICATION
  21. LEFLUNOMIDE. [Suspect]
     Active Substance: LEFLUNOMIDE
     Indication: PRODUCT USED FOR UNKNOWN INDICATION
     Dosage: 5 MG, UNK
     Route: 048
  22. APO-LEFLUNOMIDE [Suspect]
     Active Substance: LEFLUNOMIDE
     Indication: PRODUCT USED FOR UNKNOWN INDICATION
     Dosage: 10 MILLIGRAM
     Route: 048
  23. HYDROXYCHLOROQUINE SULFATE. [Suspect]
     Active Substance: HYDROXYCHLOROQUINE SULFATE
     Indication: PRODUCT USED FOR UNKNOWN INDICATION
     Dosage: 5 MG, UNK

REACTIONS (19)
  - Joint effusion [Not Recovered/Not Resolved]
  - Drug intolerance [Not Recovered/Not Resolved]
  - Gastrointestinal disorder [Not Recovered/Not Resolved]
  - Hypertension [Not Recovered/Not Resolved]
  - Iron deficiency anaemia [Not Recovered/Not Resolved]
  - Impaired work ability [Not Recovered/Not Resolved]
  - Rheumatoid arthritis [Not Recovered/Not Resolved]
  - Off label use [Unknown]
  - Arthropathy [Not Recovered/Not Resolved]
  - Tuberculin test positive [Not Recovered/Not Resolved]
  - Joint swelling [Not Recovered/Not Resolved]
  - Drug ineffective [Unknown]
  - Crohn^s disease [Not Recovered/Not Resolved]
  - Mouth ulceration [Not Recovered/Not Resolved]
  - Therapeutic product effect decreased [Unknown]
  - Contraindicated product administered [Unknown]
  - Diarrhoea [Not Recovered/Not Resolved]
  - Feeling abnormal [Not Recovered/Not Resolved]
  - Pain [Not Recovered/Not Resolved]
